FAERS Safety Report 10188094 (Version 1)
Quarter: 2014Q2

REPORT INFORMATION
  Report Type: Spontaneous
  Country: US (occurrence: None)
  Receive Date: 20140521
  Receipt Date: 20140521
  Transmission Date: 20141212
  Serious: Yes (Hospitalization, Disabling, Other)
  Sender: FDA-Public Use
  Company Number: None

PATIENT
  Age: 69 Year
  Sex: Female
  Weight: 54.89 kg

DRUGS (10)
  1. LIPITOR [Suspect]
     Indication: BLOOD CHOLESTEROL INCREASED
     Route: 048
     Dates: start: 20020916, end: 20060227
  2. SIMVASTATIN [Suspect]
     Indication: BLOOD CHOLESTEROL INCREASED
     Route: 048
     Dates: start: 20020916, end: 20060227
  3. ZOCOR [Suspect]
     Indication: BLOOD CHOLESTEROL INCREASED
     Route: 048
     Dates: start: 20020916, end: 20060207
  4. LITHIUM CARBONATE [Concomitant]
  5. CLONAZEPAM (KLONOPIN) [Concomitant]
  6. BUDEPRION XL WELLBUTRIN [Concomitant]
  7. METOPRLOL (TOPRAL) [Concomitant]
  8. AMARYL [Concomitant]
  9. MULTI VITAMIN [Concomitant]
  10. ECOTRIN [Concomitant]

REACTIONS (2)
  - Myalgia [None]
  - Diabetes mellitus [None]
